APPROVED DRUG PRODUCT: THEOPHYLLINE
Active Ingredient: THEOPHYLLINE
Strength: 300MG
Dosage Form/Route: TABLET, EXTENDED RELEASE;ORAL
Application: A216276 | Product #001 | TE Code: AB
Applicant: AMNEAL EU LTD
Approved: Mar 20, 2023 | RLD: No | RS: No | Type: RX